FAERS Safety Report 17006296 (Version 1)
Quarter: 2019Q4

REPORT INFORMATION
  Report Type: Spontaneous
  Country: US (occurrence: US)
  Receive Date: 20191106
  Receipt Date: 20191106
  Transmission Date: 20200122
  Serious: No
  Sender: FDA-Public Use
  Company Number: None

PATIENT
  Age: 30 Year
  Sex: Female
  Weight: 78.75 kg

DRUGS (2)
  1. FEMODOPHILIUS PROBIOTIC [Concomitant]
  2. TRIAMCINOLONE ACETONIDE OINTMENT UPS 0.1% [Suspect]
     Active Substance: TRIAMCINOLONE ACETONIDE
     Indication: PRURITUS
     Route: 061
     Dates: start: 20191015, end: 20191030

REACTIONS (5)
  - Application site rash [None]
  - Rash pruritic [None]
  - Inflammation [None]
  - Acne [None]
  - Acne cystic [None]

NARRATIVE: CASE EVENT DATE: 20191029
